FAERS Safety Report 7129721-7 (Version None)
Quarter: 2010Q4

REPORT INFORMATION
  Report Type: 
  Country: None (occurrence: None)
  Receive Date: 20101130
  Receipt Date: 20101118
  Transmission Date: 20110411
  Serious: Yes (Hospitalization)
  Sender: FDA-Public Use
  Company Number: US-ASTRAZENECA-2010SE54975

PATIENT
  Age: 60 Year
  Sex: Male

DRUGS (9)
  1. OMEPRAZOLE [Suspect]
     Route: 048
  2. BUDESONIDE [Concomitant]
  3. ASPIRIN [Concomitant]
     Indication: CARDIOVASCULAR EVENT PROPHYLAXIS
     Dosage: FULL STRENGTH
  4. AZITHROMYCIN [Concomitant]
     Indication: UPPER RESPIRATORY TRACT INFECTION
     Dosage: SHORT COURSE
  5. DIAZEPAM [Concomitant]
  6. VENLAFAXINE [Concomitant]
  7. ATORVASTATIN [Concomitant]
  8. ST. JOHN'S WORT [Concomitant]
  9. TESTOSTERONE [Concomitant]

REACTIONS (1)
  - TUBULOINTERSTITIAL NEPHRITIS [None]
